FAERS Safety Report 4852714-7 (Version None)
Quarter: 2005Q4

REPORT INFORMATION
  Report Type: 
  Country: None (occurrence: None)
  Receive Date: 20051213
  Receipt Date: 20051121
  Transmission Date: 20060501
  Serious: Yes (Other)
  Sender: FDA-Public Use
  Company Number: PHEH2005US12774

PATIENT
  Age: 39 Year
  Sex: Male

DRUGS (2)
  1. LAMISIL [Suspect]
     Indication: NAIL TINEA
     Dosage: UNK, QD
     Route: 048
     Dates: start: 20050101
  2. COZAAR [Concomitant]
     Indication: HYPERTENSION

REACTIONS (4)
  - DECREASED APPETITE [None]
  - FLANK PAIN [None]
  - LYMPHADENOPATHY [None]
  - PYREXIA [None]
